FAERS Safety Report 6375422-2 (Version None)
Quarter: 2009Q3

REPORT INFORMATION
  Report Type: 
  Country: None (occurrence: None)
  Receive Date: 20090921
  Receipt Date: 20090908
  Transmission Date: 20100115
  Serious: Yes (Hospitalization)
  Sender: FDA-Public Use
  Company Number: 20097399

PATIENT
  Sex: Female

DRUGS (1)
  1. LIORESAL [Suspect]
     Indication: MUSCLE SPASTICITY
     Dosage: MCG DAILY, INTRATHECAL
     Route: 037

REACTIONS (3)
  - URINARY TRACT INFECTION [None]
  - UROSEPSIS [None]
  - WOUND DEHISCENCE [None]
